FAERS Safety Report 14898908 (Version 2)
Quarter: 2018Q3

REPORT INFORMATION
  Report Type: Spontaneous
  Country: US (occurrence: US)
  Receive Date: 20180515
  Receipt Date: 20180817
  Transmission Date: 20181010
  Serious: Yes (Other)
  Sender: FDA-Public Use
  Company Number: US-BRISTOL-MYERS SQUIBB COMPANY-BMS-2018-042337

PATIENT
  Sex: Female

DRUGS (1)
  1. ORENCIA [Suspect]
     Active Substance: ABATACEPT
     Indication: PSORIATIC ARTHROPATHY
     Dosage: 125 MG
     Route: 065

REACTIONS (6)
  - Skin disorder [Unknown]
  - Skin exfoliation [Unknown]
  - Staphylococcal infection [Unknown]
  - Rash [Unknown]
  - Infection [Unknown]
  - Pruritus [Unknown]
